FAERS Safety Report 13167111 (Version 1)
Quarter: 2017Q1

REPORT INFORMATION
  Report Type: Spontaneous
  Country: SG (occurrence: SG)
  Receive Date: 20170131
  Receipt Date: 20170131
  Transmission Date: 20170428
  Serious: Yes (Other)
  Sender: FDA-Public Use
  Company Number: SG-GLENMARK PHARMACEUTICALS-2017GMK026063

PATIENT
  Age: 71 Year
  Sex: Female

DRUGS (7)
  1. HYDROCORTISONE BUTYRATE. [Suspect]
     Active Substance: HYDROCORTISONE BUTYRATE
     Indication: ASTHMA
     Dosage: UNK
     Route: 042
  2. HYDROCORTISONE BUTYRATE. [Suspect]
     Active Substance: HYDROCORTISONE BUTYRATE
     Indication: GLUCOCORTICOID DEFICIENCY
  3. DEXAMETHASONE. [Suspect]
     Active Substance: DEXAMETHASONE
     Indication: GLUCOCORTICOID DEFICIENCY
  4. DEXAMETHASONE. [Suspect]
     Active Substance: DEXAMETHASONE
     Indication: METASTASES TO CENTRAL NERVOUS SYSTEM
  5. SALINE 0.9% [Concomitant]
     Active Substance: SODIUM CHLORIDE
     Indication: PRODUCT USED FOR UNKNOWN INDICATION
     Dosage: UNK, DRIP
     Route: 065
  6. HYDROCORTISONE BUTYRATE. [Suspect]
     Active Substance: HYDROCORTISONE BUTYRATE
     Indication: METASTASES TO CENTRAL NERVOUS SYSTEM
  7. DEXAMETHASONE. [Suspect]
     Active Substance: DEXAMETHASONE
     Indication: ASTHMA
     Dosage: UNK
     Route: 065

REACTIONS (1)
  - Hypernatraemia [Recovered/Resolved]
